FAERS Safety Report 20404991 (Version 1)
Quarter: 2022Q1

REPORT INFORMATION
  Report Type: Spontaneous
  Country: US (occurrence: None)
  Receive Date: 20220129
  Receipt Date: 20220129
  Transmission Date: 20220423
  Serious: No
  Sender: FDA-Public Use
  Company Number: None

PATIENT
  Age: 69 Year
  Sex: Female
  Weight: 83.4 kg

DRUGS (2)
  1. CYTARABINE [Suspect]
     Active Substance: CYTARABINE
     Dates: end: 20210203
  2. DAUNORUBICIN [Suspect]
     Active Substance: DAUNORUBICIN
     Dates: end: 20210131

REACTIONS (6)
  - Febrile neutropenia [None]
  - Device related infection [None]
  - Bacterial test positive [None]
  - Streptococcus test positive [None]
  - Stomatitis [None]
  - Hypophagia [None]

NARRATIVE: CASE EVENT DATE: 20210209
